FAERS Safety Report 9248632 (Version 1)
Quarter: 2013Q2

REPORT INFORMATION
  Report Type: Spontaneous
  Country: US (occurrence: US)
  Receive Date: 20130423
  Receipt Date: 20130423
  Transmission Date: 20140414
  Serious: Yes (Other)
  Sender: FDA-Public Use
  Company Number: US-ELI_LILLY_AND_COMPANY-US201304003586

PATIENT
  Age: 59 Year
  Sex: Male

DRUGS (2)
  1. CYMBALTA [Suspect]
     Indication: NEURALGIA
     Dosage: 30 MG, UNK
     Route: 065
  2. CYMBALTA [Suspect]
     Dosage: 60 MG, QD
     Route: 065

REACTIONS (2)
  - Blister [Unknown]
  - Off label use [Recovered/Resolved]
